FAERS Safety Report 9321068 (Version 1)
Quarter: 2013Q2

REPORT INFORMATION
  Report Type: Spontaneous
  Country: US (occurrence: None)
  Receive Date: 20130530
  Receipt Date: 20130530
  Transmission Date: 20140414
  Serious: No
  Sender: FDA-Public Use
  Company Number: None

PATIENT
  Age: 55 Year
  Sex: Female
  Weight: 63.5 kg

DRUGS (1)
  1. RIZATRIPTAN BENZOATE [Suspect]
     Indication: MIGRAINE
     Route: 048

REACTIONS (5)
  - Confusional state [None]
  - Asthenia [None]
  - Sensation of heaviness [None]
  - Throat tightness [None]
  - Product substitution issue [None]
